FAERS Safety Report 7050644-6 (Version None)
Quarter: 2010Q4

REPORT INFORMATION
  Report Type: 
  Country: None (occurrence: None)
  Receive Date: 20101018
  Receipt Date: 20101011
  Transmission Date: 20110411
  Serious: Yes (Other)
  Sender: FDA-Public Use
  Company Number: FR-MERCK-1005FRA00027

PATIENT
  Age: 52 Year
  Sex: Female
  Weight: 40 kg

DRUGS (6)
  1. ISENTRESS [Suspect]
     Indication: HIV INFECTION
     Route: 048
     Dates: start: 20100331, end: 20100423
  2. ISENTRESS [Suspect]
     Route: 048
     Dates: start: 20100423, end: 20100506
  3. LOPINAVIR AND RITONAVIR [Concomitant]
     Indication: HIV INFECTION
     Route: 048
     Dates: start: 20100309
  4. FLUCONAZOLE [Concomitant]
     Indication: PROPHYLAXIS
     Route: 048
     Dates: start: 20100313
  5. FLUCONAZOLE [Concomitant]
     Route: 048
     Dates: start: 20100313
  6. ATOVAQUONE [Concomitant]
     Route: 048

REACTIONS (2)
  - IMMUNE RECONSTITUTION SYNDROME [None]
  - POLYMYOSITIS [None]
